FAERS Safety Report 13032979 (Version 1)
Quarter: 2016Q4

REPORT INFORMATION
  Report Type: Spontaneous
  Country: US (occurrence: US)
  Receive Date: 20161215
  Receipt Date: 20161215
  Transmission Date: 20170207
  Serious: Yes (Hospitalization)
  Sender: FDA-Public Use
  Company Number: US-MAYNE PHARMA-2016MYN000944

PATIENT
  Age: 18 Year
  Sex: Female
  Weight: 77.98 kg

DRUGS (7)
  1. OLANZAPINE. [Concomitant]
     Active Substance: OLANZAPINE
     Dosage: 20 MG, QHS
  2. LAMOTRIGINE. [Concomitant]
     Active Substance: LAMOTRIGINE
     Dosage: 100 MG, QHS
  3. OLANZAPINE. [Concomitant]
     Active Substance: OLANZAPINE
     Dosage: 5 MG, QHS
  4. CLONIDINE. [Suspect]
     Active Substance: CLONIDINE
     Dosage: 0.3 MG, WEEKLY
     Route: 061
     Dates: start: 201611
  5. CLONIDINE. [Suspect]
     Active Substance: CLONIDINE
     Indication: ANGER
     Dosage: 0.3 MG, WEEKLY
     Route: 061
  6. AMANTADINE [Concomitant]
     Active Substance: AMANTADINE
     Dosage: 100 MG, BID
  7. LAMOTRIGINE. [Concomitant]
     Active Substance: LAMOTRIGINE
     Dosage: 50 MG, QHS

REACTIONS (5)
  - Agitation [Recovering/Resolving]
  - Repetitive speech [Recovering/Resolving]
  - Product use issue [Unknown]
  - Delirium [Recovering/Resolving]
  - Aggression [Recovering/Resolving]

NARRATIVE: CASE EVENT DATE: 20161130
